FAERS Safety Report 8398474-7 (Version None)
Quarter: 2012Q2

REPORT INFORMATION
  Report Type: 
  Country: None (occurrence: None)
  Receive Date: 20120531
  Receipt Date: 20120524
  Transmission Date: 20120825
  Serious: Yes (Death, Other)
  Sender: FDA-Public Use
  Company Number: US-SANOFI-AVENTIS-2012SA038263

PATIENT
  Sex: Male

DRUGS (1)
  1. PLAVIX [Suspect]
     Route: 048
     Dates: start: 20070101, end: 20100701

REACTIONS (3)
  - GASTROINTESTINAL HAEMORRHAGE [None]
  - MYOCARDIAL INFARCTION [None]
  - DEATH [None]
